FAERS Safety Report 4430618-1 (Version None)
Quarter: 2004Q3

REPORT INFORMATION
  Report Type: 
  Country: None (occurrence: None)
  Receive Date: 20040819
  Receipt Date: 20040819
  Transmission Date: 20050211
  Serious: Yes (Hospitalization)
  Sender: FDA-Public Use
  Company Number: None

PATIENT
  Sex: Female
  Weight: 113.3993 kg

DRUGS (17)
  1. CIPRO [Suspect]
     Dosage: 250 MG PO QD
     Route: 048
     Dates: start: 20040301, end: 20040306
  2. ACIDOPHILUS [Concomitant]
  3. ALFUZOSIN [Concomitant]
  4. ALLOPARINOL [Concomitant]
  5. ASPIRIN [Concomitant]
  6. DIGOXIN [Concomitant]
  7. EZETIMIBE [Concomitant]
  8. FELODIPINE [Concomitant]
  9. FOSINOPRIL SODIUM [Concomitant]
  10. FUROSEMIDE [Concomitant]
  11. GABAPENTIN [Concomitant]
  12. GLIPIZIDE [Concomitant]
  13. NPH INSULIN [Concomitant]
  14. METOPROLOL [Concomitant]
  15. KCL TAB [Concomitant]
  16. SIMVASTATIN [Concomitant]
  17. TERAZOSIN HCL [Concomitant]

REACTIONS (5)
  - ABDOMINAL DISTENSION [None]
  - CARDIAC FAILURE CONGESTIVE [None]
  - CLOSTRIDIUM COLITIS [None]
  - HAEMATEMESIS [None]
  - PYREXIA [None]
